FAERS Safety Report 5947792-8 (Version None)
Quarter: 2008Q4

REPORT INFORMATION
  Report Type: 
  Country: None (occurrence: None)
  Receive Date: 20081111
  Receipt Date: 20081103
  Transmission Date: 20090506
  Serious: No
  Sender: FDA-Public Use
  Company Number: FR-JNJFOC-20081100449

PATIENT
  Age: 14 Year
  Sex: Female

DRUGS (5)
  1. RISPERDAL [Suspect]
     Route: 048
  2. RISPERDAL [Suspect]
     Route: 048
  3. RISPERDAL [Suspect]
     Indication: DRUG USE FOR UNKNOWN INDICATION
     Route: 048
  4. ZOLOFT [Concomitant]
  5. XANAX [Concomitant]

REACTIONS (2)
  - BLOOD PROLACTIN INCREASED [None]
  - LEUKOPENIA [None]
